FAERS Safety Report 21338721 (Version 1)
Quarter: 2022Q3

REPORT INFORMATION
  Report Type: Spontaneous
  Country: NO (occurrence: NO)
  Receive Date: 20220915
  Receipt Date: 20220915
  Transmission Date: 20221027
  Serious: Yes (Life-Threatening, Other)
  Sender: FDA-Public Use
  Company Number: None

PATIENT
  Age: 47 Year
  Sex: Female
  Weight: 57 kg

DRUGS (1)
  1. NAFARELIN ACETATE [Suspect]
     Active Substance: NAFARELIN ACETATE
     Indication: Artificial menopause
     Dosage: 400 UG, 2X/DAY (EVERY 12 HOURS)
     Dates: start: 20220818

REACTIONS (6)
  - Suicidal ideation [Unknown]
  - Homicidal ideation [Unknown]
  - Depression [Recovering/Resolving]
  - Feeling of despair [Unknown]
  - Crying [Unknown]
  - Off label use [Unknown]

NARRATIVE: CASE EVENT DATE: 20220818
